FAERS Safety Report 10665392 (Version 3)
Quarter: 2015Q1

REPORT INFORMATION
  Report Type: Report from Study
  Country: BR (occurrence: BR)
  Receive Date: 20141219
  Receipt Date: 20150127
  Transmission Date: 20150720
  Serious: Yes (Death, Hospitalization, Other)
  Sender: FDA-Public Use
  Company Number: BR-ABBVIE-14K-020-1287504-00

PATIENT
  Age: 46 Year
  Sex: Female
  Weight: 71 kg

DRUGS (4)
  1. HUMIRA [Suspect]
     Active Substance: ADALIMUMAB
     Indication: CROHN^S DISEASE
     Dosage: UNSPECIFIED INDUCTION DOSE
     Route: 058
  2. HUMIRA [Suspect]
     Active Substance: ADALIMUMAB
     Route: 058
     Dates: end: 201407
  3. AZATHIOPRINE. [Concomitant]
     Active Substance: AZATHIOPRINE
     Indication: CROHN^S DISEASE
  4. MESALAZINE [Concomitant]
     Active Substance: MESALAMINE
     Indication: CROHN^S DISEASE

REACTIONS (15)
  - Gastrointestinal stoma complication [Recovering/Resolving]
  - Gait disturbance [Unknown]
  - Retching [Unknown]
  - Loss of consciousness [Unknown]
  - Lung infection [Recovering/Resolving]
  - Localised infection [Recovering/Resolving]
  - Immunodeficiency [Unknown]
  - Gastrointestinal infection [Unknown]
  - Confusional state [Recovering/Resolving]
  - Muscle atrophy [Unknown]
  - Bronchopneumonia [Fatal]
  - Gastrointestinal bacterial infection [Recovered/Resolved]
  - Steroid therapy [Fatal]
  - Septic shock [Fatal]
  - Crohn^s disease [Fatal]

NARRATIVE: CASE EVENT DATE: 201409
